FAERS Safety Report 10463091 (Version 1)
Quarter: 2014Q3

REPORT INFORMATION
  Report Type: Spontaneous
  Country: US (occurrence: US)
  Receive Date: 20140919
  Receipt Date: 20140919
  Transmission Date: 20150326
  Serious: Yes (Death)
  Sender: FDA-Public Use
  Company Number: US-UNITED THERAPEUTICS-UNT-2014-007422

PATIENT
  Age: 6 Month
  Sex: Female

DRUGS (1)
  1. REMODULIN [Suspect]
     Active Substance: TREPROSTINIL
     Indication: PULMONARY ARTERIAL HYPERTENSION
     Dosage: 0.020 ?G/KG, CONTINUING
     Dates: start: 2014

REACTIONS (5)
  - Off label use [Unknown]
  - Right ventricular failure [Fatal]
  - Incorrect dose administered [Unknown]
  - Pulmonary arterial hypertension [Fatal]
  - Cardiac disorder [Fatal]

NARRATIVE: CASE EVENT DATE: 2014
